FAERS Safety Report 6665369-6 (Version None)
Quarter: 2010Q2

REPORT INFORMATION
  Report Type: 
  Country: None (occurrence: None)
  Receive Date: 20100402
  Receipt Date: 20100324
  Transmission Date: 20101027
  Serious: Yes (Life-Threatening)
  Sender: FDA-Public Use
  Company Number: BG-ELI_LILLY_AND_COMPANY-BG201003005439

PATIENT
  Sex: Male
  Weight: 61 kg

DRUGS (15)
  1. PRASUGREL HYDROCHLORIDE [Suspect]
     Indication: ACUTE CORONARY SYNDROME
     Route: 048
     Dates: start: 20100122
  2. ASPIRIN [Concomitant]
     Indication: PROPHYLAXIS
     Dosage: 100 MG, UNK
     Dates: start: 20091212, end: 20100118
  3. ASPIRIN [Concomitant]
     Dosage: 100 MG, UNK
     Dates: start: 20100128
  4. BISOPROLOL [Concomitant]
     Indication: PROPHYLAXIS
     Dates: start: 20091228, end: 20100127
  5. ZOFENOPRIL [Concomitant]
     Indication: PROPHYLAXIS
     Dates: start: 20091212
  6. FURANTHRIL [Concomitant]
     Indication: CARDIAC FAILURE CHRONIC
     Dates: start: 20091212
  7. SPIRONOLACTONE [Concomitant]
     Indication: CARDIAC FAILURE CHRONIC
     Dates: start: 20091212
  8. CEFTRIAXON [Concomitant]
     Indication: PNEUMONIA
     Dates: start: 20100118, end: 20100126
  9. CIPROFLOXACIN [Concomitant]
     Indication: PNEUMONIA
     Dates: start: 20100118, end: 20100126
  10. LIDOCAINE [Concomitant]
     Indication: VENTRICULAR FIBRILLATION
     Dates: start: 20100125, end: 20100126
  11. AMIODARONE HCL [Concomitant]
     Indication: VENTRICULAR FIBRILLATION
     Dates: start: 20100125
  12. MACROPEN [Concomitant]
     Indication: PNEUMONIA
     Dates: start: 20100126, end: 20100128
  13. DEGAN [Concomitant]
     Indication: NAUSEA
     Dates: start: 20100125, end: 20100125
  14. DIAZEPAM [Concomitant]
     Indication: INSOMNIA
     Dates: start: 20100125, end: 20100125
  15. ISOSORBIDE MONONITRATE [Concomitant]
     Indication: PROPHYLAXIS
     Dates: start: 20100128

REACTIONS (1)
  - THROMBOSIS IN DEVICE [None]
